FAERS Safety Report 4395281-7 (Version None)
Quarter: 2004Q3

REPORT INFORMATION
  Report Type: 
  Country: None (occurrence: None)
  Receive Date: 20040706
  Receipt Date: 20040621
  Transmission Date: 20050211
  Serious: Yes (Disabling)
  Sender: FDA-Public Use
  Company Number: 2004GB01475

PATIENT
  Age: 59 Year
  Sex: Female

DRUGS (5)
  1. NOLVADEX [Suspect]
     Indication: BREAST CANCER
     Dosage: 20 MG PO
     Route: 048
     Dates: start: 20010410, end: 20010801
  2. ENALAPRIL MALEATE [Concomitant]
  3. MEGESTROL [Concomitant]
  4. IRBESARTAN [Concomitant]
  5. ... [Concomitant]

REACTIONS (2)
  - BLISTER [None]
  - URTICARIA [None]
